FAERS Safety Report 19012528 (Version 3)
Quarter: 2021Q2

REPORT INFORMATION
  Report Type: Report from Study
  Country: GB (occurrence: GB)
  Receive Date: 20210315
  Receipt Date: 20210520
  Transmission Date: 20210717
  Serious: Yes (Hospitalization, Other)
  Sender: FDA-Public Use
  Company Number: GB-TAKEDA-2021TUS013197

PATIENT
  Age: 75 Year
  Sex: Female

DRUGS (2)
  1. LENALIDOMIDE [Concomitant]
     Active Substance: LENALIDOMIDE
     Dosage: UNK
     Route: 065
  2. IXAZOMIB [Suspect]
     Active Substance: IXAZOMIB
     Indication: PLASMA CELL MYELOMA
     Dosage: 3 MILLIGRAM
     Route: 048
     Dates: start: 20201115

REACTIONS (11)
  - Bone lesion [Recovering/Resolving]
  - Arthralgia [Recovering/Resolving]
  - Rash maculo-papular [Recovering/Resolving]
  - Abdominal pain upper [Not Recovered/Not Resolved]
  - Acute coronary syndrome [Recovering/Resolving]
  - Dyspnoea [Recovering/Resolving]
  - Musculoskeletal chest pain [Recovering/Resolving]
  - Diarrhoea [Not Recovered/Not Resolved]
  - Urinary tract infection [Recovering/Resolving]
  - Neuropathy peripheral [Not Recovered/Not Resolved]
  - Chest pain [Recovering/Resolving]

NARRATIVE: CASE EVENT DATE: 20210222
